FAERS Safety Report 5053539-2 (Version None)
Quarter: 2006Q3

REPORT INFORMATION
  Report Type: 
  Country: None (occurrence: None)
  Receive Date: 20060712
  Receipt Date: 20060623
  Transmission Date: 20061208
  Serious: Yes (Hospitalization, Other)
  Sender: FDA-Public Use
  Company Number: ES200603000045

PATIENT
  Age: 62 Year
  Sex: Female

DRUGS (5)
  1. FORTEO [Suspect]
     Indication: OSTEOPOROSIS
  2. FORTEO PEN (FORTEO PEN) [Concomitant]
  3. EUTIROX (LEVOTHYROXINE) [Concomitant]
  4. GLYBURIDE [Concomitant]
  5. CARDURAN (DOXAZOSIN MESILATE) [Concomitant]

REACTIONS (5)
  - HEPATITIS [None]
  - PAIN [None]
  - RENAL COLIC [None]
  - THERAPY NON-RESPONDER [None]
  - YELLOW SKIN [None]
